FAERS Safety Report 24844786 (Version 1)
Quarter: 2025Q1

REPORT INFORMATION
  Report Type: Spontaneous
  Country: FR (occurrence: FR)
  Receive Date: 20250115
  Receipt Date: 20250115
  Transmission Date: 20250408
  Serious: Yes (Hospitalization, Other)
  Sender: HRA PHARMA
  Company Number: FR-ORG100014127-2025000004

PATIENT
  Age: 77 Year
  Sex: Male
  Weight: 103.5 kg

DRUGS (17)
  1. MITOTANE [Suspect]
     Active Substance: MITOTANE
     Indication: Adrenocortical carcinoma
     Route: 048
     Dates: start: 20240228, end: 20240310
  2. AZITHROMYCIN [Suspect]
     Active Substance: AZITHROMYCIN
     Indication: Lung disorder
     Dates: start: 20240305, end: 20240310
  3. ISTURISA [OSILODROSTAT (PHOSPHATE D^)] [Concomitant]
     Indication: Product used for unknown indication
  4. HYDROCORTISONE (ACETATE D^) [Concomitant]
     Indication: Product used for unknown indication
  5. RAMIPRIL [Concomitant]
     Active Substance: RAMIPRIL
     Indication: Product used for unknown indication
  6. HYDROCHLOROTHIAZIDE [Concomitant]
     Active Substance: HYDROCHLOROTHIAZIDE
     Indication: Product used for unknown indication
  7. FUROSEMIDE [Concomitant]
     Active Substance: FUROSEMIDE
     Indication: Product used for unknown indication
  8. OZEMPIC [SEMAGLUTIDE ((LEVURE/SACCHAROMYCES CEREVISIAE))] [Concomitant]
     Indication: Product used for unknown indication
  9. METFORMINE [METFORMINE] [Concomitant]
     Indication: Product used for unknown indication
  10. FORXIGA [DAPAGLIFLOZINE] [Concomitant]
     Indication: Product used for unknown indication
  11. ALLOPURINOL [ALLOPURINOL] [Concomitant]
     Indication: Product used for unknown indication
  12. SPIRONOLACTONE [SPIRONOLACTONE] [Concomitant]
     Indication: Product used for unknown indication
  13. ELIQUIS [APIXABAN] [Concomitant]
     Indication: Product used for unknown indication
  14. FINASTERIDE [FINASTERIDE] [Concomitant]
     Indication: Product used for unknown indication
  15. ROSUVASTATINE [ROSUVASTATINE] [Concomitant]
     Indication: Product used for unknown indication
  16. DIFFU K [POTASSIUM (CHLORURE DE)] [Concomitant]
     Indication: Product used for unknown indication
  17. ECONAZOLE [ECONAZOLE] [Concomitant]
     Indication: Product used for unknown indication

REACTIONS (1)
  - Acute generalised exanthematous pustulosis [Recovered/Resolved]

NARRATIVE: CASE EVENT DATE: 20240310
